FAERS Safety Report 16802838 (Version 3)
Quarter: 2019Q4

REPORT INFORMATION
  Report Type: Report from Study
  Country: None (occurrence: BE)
  Receive Date: 20190913
  Receipt Date: 20191206
  Transmission Date: 20200122
  Serious: Yes (Other)
  Sender: FDA-Public Use
  Company Number: BE-ABBVIE-19K-013-2910692-00

PATIENT
  Sex: Male

DRUGS (6)
  1. BISOPROLOL [Concomitant]
     Active Substance: BISOPROLOL
     Indication: PRODUCT USED FOR UNKNOWN INDICATION
  2. BELSAR [Concomitant]
     Indication: PRODUCT USED FOR UNKNOWN INDICATION
  3. DUODOPA [Suspect]
     Active Substance: CARBIDOPA\LEVODOPA
     Dosage: MD=7.5ML, CD=4.2ML/HR DURING 16HRS, ED=2ML
     Route: 050
     Dates: start: 20180419
  4. DUODOPA [Suspect]
     Active Substance: CARBIDOPA\LEVODOPA
     Dosage: MD=8.5ML, CD=4.2ML/HR DURING 16HRS, ED=2ML
     Route: 050
  5. DUODOPA [Suspect]
     Active Substance: CARBIDOPA\LEVODOPA
     Indication: PARKINSON^S DISEASE
     Dosage: MD=8ML, CD=4.4ML/HR DURING 16HRS, ED=3ML
     Route: 050
     Dates: start: 20120424, end: 20120426
  6. DUODOPA [Suspect]
     Active Substance: CARBIDOPA\LEVODOPA
     Dosage: DOSES CONTINUOUSLY MONITORED AND ADAPTED
     Route: 050
     Dates: start: 20120426, end: 20180419

REACTIONS (10)
  - Dizziness postural [Unknown]
  - Indifference [Unknown]
  - Dyskinesia [Unknown]
  - Confusional state [Unknown]
  - Polyneuropathy [Unknown]
  - Fall [Recovered/Resolved]
  - Orthostatic hypotension [Unknown]
  - Drug dependence [Unknown]
  - Wrong technique in device usage process [Unknown]
  - Device issue [Unknown]

NARRATIVE: CASE EVENT DATE: 2019
